FAERS Safety Report 11643059 (Version 1)
Quarter: 2015Q4

REPORT INFORMATION
  Report Type: Report from Study
  Country: GB (occurrence: GB)
  Receive Date: 20151020
  Receipt Date: 20151020
  Transmission Date: 20160304
  Serious: Yes (Other)
  Sender: FDA-Public Use
  Company Number: GB-ROCHE-1625388

PATIENT
  Age: 11 Year
  Sex: Male

DRUGS (2)
  1. NUTROPIN AQ [Suspect]
     Active Substance: SOMATROPIN
     Dosage: 10 MG/ 2 ML
     Route: 065
     Dates: start: 201507
  2. NUTROPIN AQ [Suspect]
     Active Substance: SOMATROPIN
     Indication: PRODUCT USED FOR UNKNOWN INDICATION
     Dosage: 10 MG/ 2 ML
     Route: 065

REACTIONS (4)
  - Device issue [Unknown]
  - Headache [Unknown]
  - Drug dose omission [Unknown]
  - Neoplasm [Not Recovered/Not Resolved]
